FAERS Safety Report 12109050 (Version 1)
Quarter: 2016Q1

REPORT INFORMATION
  Report Type: Spontaneous
  Country: US (occurrence: None)
  Receive Date: 20160222
  Receipt Date: 20160222
  Transmission Date: 20160526
  Serious: No
  Sender: FDA-Public Use
  Company Number: None

PATIENT
  Age: 46 Year
  Sex: Female

DRUGS (9)
  1. CLOTRIMAZOLE. [Concomitant]
     Active Substance: CLOTRIMAZOLE
  2. SUMATRIPTAN. [Concomitant]
     Active Substance: SUMATRIPTAN
  3. XGEVA [Concomitant]
     Active Substance: DENOSUMAB
  4. GABAPENTIN. [Concomitant]
     Active Substance: GABAPENTIN
  5. AFINITOR [Suspect]
     Active Substance: EVEROLIMUS
     Indication: NEOPLASM MALIGNANT
     Route: 048
     Dates: start: 20151106
  6. LORAZEPAM. [Concomitant]
     Active Substance: LORAZEPAM
  7. PROTONI [Concomitant]
  8. EXEMESTANE. [Suspect]
     Active Substance: EXEMESTANE
     Indication: NEOPLASM MALIGNANT
     Route: 048
     Dates: start: 20151201
  9. FRAZODONE [Concomitant]

REACTIONS (5)
  - Stomatitis [None]
  - Eye swelling [None]
  - Insomnia [None]
  - Heart rate increased [None]
  - Headache [None]

NARRATIVE: CASE EVENT DATE: 201511
